FAERS Safety Report 7313738-3 (Version None)
Quarter: 2011Q1

REPORT INFORMATION
  Report Type: 
  Country: None (occurrence: None)
  Receive Date: 20110225
  Receipt Date: 20110217
  Transmission Date: 20110831
  Serious: Yes (Other)
  Sender: FDA-Public Use
  Company Number: US-AMGEN-USASP2011009628

PATIENT
  Sex: Male

DRUGS (1)
  1. ENBREL [Suspect]
     Indication: PSORIASIS
     Dosage: UNK
     Dates: start: 20101101

REACTIONS (4)
  - PULMONARY FIBROSIS [None]
  - MUSCULAR WEAKNESS [None]
  - IMMUNOSUPPRESSION [None]
  - STAPHYLOCOCCAL INFECTION [None]
